FAERS Safety Report 9519066 (Version 1)
Quarter: 2013Q1

REPORT INFORMATION
  Report Type: Spontaneous
  Country: US (occurrence: None)
  Receive Date: 20130305
  Receipt Date: 20130305
  Transmission Date: 20140127
  Serious: Yes (Other)
  Sender: FDA-Public Use
  Company Number: 163-21880-12010590

PATIENT
  Age: 74 Year
  Sex: Male

DRUGS (2)
  1. REVLIMID [Suspect]
     Indication: PLASMA CELL MYELOMA
     Dosage: 15 MG, DAILY X 3WKS, 1 WK OFF, PO
     Route: 048
     Dates: start: 20070405, end: 20090303
  2. COUMADIN (WARFARIN SODIUM) (UNKNOWN) [Concomitant]

REACTIONS (1)
  - Atrial fibrillation [None]
